FAERS Safety Report 13023082 (Version 1)
Quarter: 2016Q4

REPORT INFORMATION
  Report Type: Spontaneous
  Country: US (occurrence: US)
  Receive Date: 20161213
  Receipt Date: 20161213
  Transmission Date: 20170207
  Serious: No
  Sender: FDA-Public Use
  Company Number: US-TEVA-641418USA

PATIENT
  Sex: Female
  Weight: 31.78 kg

DRUGS (1)
  1. AZITHROMYCIN ANHYDROUS. [Suspect]
     Active Substance: AZITHROMYCIN ANHYDROUS
     Indication: PNEUMONIA
     Dosage: DAILY X 5 DAYS
     Route: 048
     Dates: start: 20160201

REACTIONS (2)
  - Medication error [Unknown]
  - Incorrect product storage [Unknown]
